FAERS Safety Report 15461622 (Version 2)
Quarter: 2018Q4

REPORT INFORMATION
  Report Type: Spontaneous
  Country: IT (occurrence: IT)
  Receive Date: 20181003
  Receipt Date: 20181025
  Transmission Date: 20190204
  Serious: Yes (Life-Threatening, Other)
  Sender: FDA-Public Use
  Company Number: IT-SHIRE-IT201837813

PATIENT

DRUGS (2)
  1. ONCASPAR [Suspect]
     Active Substance: PEGASPARGASE
     Indication: ANGIOCENTRIC LYMPHOMA
  2. ONCASPAR [Suspect]
     Active Substance: PEGASPARGASE
     Indication: NON-HODGKIN^S LYMPHOMA
     Dosage: 3700 IU, 1X/DAY:QD
     Route: 042
     Dates: start: 20180823, end: 20180823

REACTIONS (1)
  - Anaphylactic shock [Recovered/Resolved]

NARRATIVE: CASE EVENT DATE: 20180823
